FAERS Safety Report 8540554-7 (Version None)
Quarter: 2012Q3

REPORT INFORMATION
  Report Type: 
  Country: None (occurrence: None)
  Receive Date: 20120726
  Receipt Date: 20110802
  Transmission Date: 20120928
  Serious: No
  Sender: FDA-Public Use
  Company Number: US-ASTRAZENECA-2011SE46444

PATIENT
  Age: 36 Year
  Sex: Male
  Weight: 93.8 kg

DRUGS (3)
  1. TRAZODONE HYDROCHLORIDE [Concomitant]
  2. COLAZAL [Concomitant]
  3. SEROQUEL [Suspect]
     Route: 048

REACTIONS (4)
  - INSOMNIA [None]
  - MIDDLE INSOMNIA [None]
  - FATIGUE [None]
  - POOR QUALITY SLEEP [None]
